FAERS Safety Report 21017842 (Version 1)
Quarter: 2022Q2

REPORT INFORMATION
  Report Type: Spontaneous
  Country: BR (occurrence: BR)
  Receive Date: 20220628
  Receipt Date: 20220628
  Transmission Date: 20220721
  Serious: Yes (Death)
  Sender: FDA-Public Use
  Company Number: BR-SERVIER DO BRASIL-S22006516

PATIENT
  Age: 53 Year
  Sex: Female

DRUGS (1)
  1. LONSURF [Suspect]
     Active Substance: TIPIRACIL HYDROCHLORIDE\TRIFLURIDINE
     Indication: Product used for unknown indication
     Dosage: UNK, ON DAY 1-5 AND 8-12 OF EACH 28-DAY CYCLE
     Route: 048

REACTIONS (1)
  - Pneumonitis [Fatal]
